FAERS Safety Report 20098538 (Version 1)
Quarter: 2021Q4

REPORT INFORMATION
  Report Type: Spontaneous
  Country: US (occurrence: US)
  Receive Date: 20211122
  Receipt Date: 20211122
  Transmission Date: 20220303
  Serious: Yes (Other)
  Sender: FDA-Public Use
  Company Number: US-BRACCO-2020US04911

PATIENT
  Age: 63 Year
  Sex: Male

DRUGS (8)
  1. LUMASON [Suspect]
     Active Substance: SULFUR HEXAFLUORIDE
     Indication: Echocardiogram
     Dosage: 4 ML, SINGLE
     Route: 042
     Dates: start: 20201125, end: 20201125
  2. LUMASON [Suspect]
     Active Substance: SULFUR HEXAFLUORIDE
     Indication: Echocardiogram
     Dosage: 4 ML, SINGLE
     Route: 042
     Dates: start: 20201125, end: 20201125
  3. LUMASON [Suspect]
     Active Substance: SULFUR HEXAFLUORIDE
     Indication: Echocardiogram
     Dosage: 4 ML, SINGLE
     Route: 042
     Dates: start: 20201125, end: 20201125
  4. POTASSIUM BICARBONATE [Concomitant]
     Active Substance: POTASSIUM BICARBONATE
  5. CARVEDILOL [Concomitant]
     Active Substance: CARVEDILOL
  6. SOLU-CORTEF [Concomitant]
     Active Substance: HYDROCORTISONE SODIUM SUCCINATE
  7. LASIX                              /00032601/ [Concomitant]
  8. ASPIRIN                            /00002701/ [Concomitant]

REACTIONS (4)
  - Oxygen saturation decreased [Recovered/Resolved]
  - Bradycardia [Recovered/Resolved]
  - Hypotension [Recovered/Resolved]
  - Chest pain [Recovered/Resolved]

NARRATIVE: CASE EVENT DATE: 20201125
